FAERS Safety Report 9501523 (Version 6)
Quarter: 2014Q1

REPORT INFORMATION
  Report Type: Report from Study
  Country: GB (occurrence: GB)
  Receive Date: 20130905
  Receipt Date: 20140131
  Transmission Date: 20141002
  Serious: Yes (Hospitalization, Other)
  Sender: FDA-Public Use
  Company Number: GB-BRISTOL-MYERS SQUIBB COMPANY-19207927

PATIENT
  Age: 67 Year
  Sex: Male

DRUGS (5)
  1. IPILIMUMAB [Suspect]
     Indication: METASTATIC MALIGNANT MELANOMA
     Dosage: 300MG
     Route: 042
     Dates: start: 20130509, end: 20130712
  2. FELODIPINE [Concomitant]
  3. ATORVASTATIN [Concomitant]
  4. OMEPRAZOLE [Concomitant]
  5. LANSOPRAZOLE [Concomitant]

REACTIONS (2)
  - Diarrhoea [Recovered/Resolved]
  - Headache [Recovered/Resolved]
